FAERS Safety Report 7412765-5 (Version None)
Quarter: 2011Q2

REPORT INFORMATION
  Report Type: 
  Country: None (occurrence: None)
  Receive Date: 20110404
  Receipt Date: 20110321
  Transmission Date: 20111010
  Serious: Yes (Other)
  Sender: FDA-Public Use
  Company Number: 029761

PATIENT
  Sex: Female

DRUGS (9)
  1. PRETERAX (PRETERAX) [Suspect]
     Indication: HYPERTENSION
     Dosage: ORAL
     Route: 048
  2. VOLTARENE /00372302/ (VOLTARENE) [Suspect]
     Indication: OSTEOARTHRITIS
     Dosage: 150 MG, FOR 5 OR 6 DAYS, ORAL
     Route: 048
  3. BONIVA [Suspect]
     Indication: OSTEOPOROSIS
     Dosage: 1 UNIT MONTHLY, ORAL
     Route: 048
     Dates: start: 20070401
  4. SPIRIVA [Concomitant]
  5. PIASCLEDINE /01305801/ (PIASCLEDINE) [Suspect]
     Indication: OSTEOARTHRITIS
     Dosage: 300 MG, QD, ORAL
     Route: 048
  6. XYZALL /01530201/ (XYZALL) [Suspect]
     Indication: SEASONAL ALLERGY
     Dosage: 1 UNIT IN SPRING, ORAL
     Route: 048
  7. MOVICOL /01749801/ (MOVICOL) [Suspect]
     Indication: CONSTIPATION
     Dosage: 1 UNIT DAILY, ORAL
     Route: 048
  8. FEMARA [Suspect]
     Indication: BREAST CANCER
     Dosage: 2.5 MG QD, ORAL
     Route: 048
     Dates: start: 20060101
  9. TAHOR (TAHOR) [Suspect]
     Indication: HYPERCHOLESTEROLAEMIA
     Dosage: 10 MG, QD, ORAL
     Route: 048
     Dates: start: 20080801

REACTIONS (8)
  - HEARING IMPAIRED [None]
  - ERUCTATION [None]
  - CHEST DISCOMFORT [None]
  - RESPIRATORY DISORDER [None]
  - MALAISE [None]
  - VISUAL IMPAIRMENT [None]
  - HYPOTONIA [None]
  - FALL [None]
